FAERS Safety Report 5149906-9 (Version None)
Quarter: 2006Q4

REPORT INFORMATION
  Report Type: 
  Country: None (occurrence: None)
  Receive Date: 20061108
  Receipt Date: 20060828
  Transmission Date: 20070319
  Serious: Yes (Hospitalization, Other)
  Sender: FDA-Public Use
  Company Number: 2006069312

PATIENT
  Age: 50 Year
  Sex: Female
  Weight: 146.5118 kg

DRUGS (3)
  1. CELEBREX [Suspect]
     Dosage: 400 MG (200 MG, 1 IN 2 D)
     Dates: start: 20010101, end: 20021210
  2. BEXTRA [Suspect]
     Dosage: 20 MG (20 MG, 1 IN 1 D)
     Dates: start: 20021001
  3. VIOXX [Suspect]
     Dosage: 50 MG (25 MG, 1 IN 2 D), ORAL
     Route: 048
     Dates: start: 20010801, end: 20020718

REACTIONS (3)
  - DEEP VEIN THROMBOSIS [None]
  - NASOPHARYNGITIS [None]
  - PULMONARY EMBOLISM [None]
